FAERS Safety Report 13577668 (Version 2)
Quarter: 2017Q2

REPORT INFORMATION
  Report Type: Spontaneous
  Country: DE (occurrence: DE)
  Receive Date: 20170524
  Receipt Date: 20170601
  Transmission Date: 20170830
  Serious: Yes (Other)
  Sender: FDA-Public Use
  Company Number: DE-TEVA-769518GER

PATIENT
  Age: 4 Decade
  Sex: Male

DRUGS (3)
  1. NOVORAPID [Concomitant]
     Active Substance: INSULIN ASPART
     Route: 042
  2. AMOXICILLIN-RATIOPHARM 1000 MG FILMTABLETTEN [Suspect]
     Active Substance: AMOXICILLIN
     Indication: DENTAL OPERATION
     Dosage: 3000 MILLIGRAM DAILY;
     Route: 048
     Dates: start: 20170413, end: 20170417
  3. TOUJEO [Concomitant]
     Active Substance: INSULIN GLARGINE
     Route: 042

REACTIONS (9)
  - Feeling hot [Recovered/Resolved]
  - Dizziness [Recovered/Resolved]
  - Rash [Recovered/Resolved]
  - Loss of consciousness [Recovered/Resolved]
  - Rash pustular [Recovered/Resolved]
  - Presyncope [Recovered/Resolved]
  - Joint stiffness [Recovered/Resolved]
  - Pruritus [Recovered/Resolved]
  - Joint swelling [Recovered/Resolved]

NARRATIVE: CASE EVENT DATE: 20170421
